FAERS Safety Report 25205704 (Version 1)
Quarter: 2025Q2

REPORT INFORMATION
  Report Type: Spontaneous
  Country: DE (occurrence: DE)
  Receive Date: 20250417
  Receipt Date: 20250417
  Transmission Date: 20250717
  Serious: Yes (Life-Threatening, Hospitalization, Other)
  Sender: UNICHEM
  Company Number: DE-UNICHEM LABORATORIES LIMITED-UNI-2025-DE-001793

PATIENT

DRUGS (1)
  1. QUETIAPINE [Suspect]
     Active Substance: QUETIAPINE
     Indication: Product used for unknown indication
     Route: 065

REACTIONS (7)
  - Multiple organ dysfunction syndrome [Unknown]
  - Toxicity to various agents [Unknown]
  - Anticholinergic syndrome [Unknown]
  - Suicidal ideation [Unknown]
  - Acute kidney injury [Unknown]
  - Coagulopathy [Unknown]
  - Bezoar [Unknown]
